FAERS Safety Report 8584480-6 (Version None)
Quarter: 2012Q3

REPORT INFORMATION
  Report Type: 
  Country: None (occurrence: None)
  Receive Date: 20120810
  Receipt Date: 20120806
  Transmission Date: 20120928
  Serious: No
  Sender: FDA-Public Use
  Company Number: US-PFIZER INC-2012191299

PATIENT

DRUGS (1)
  1. LYRICA [Suspect]
     Dosage: UNK

REACTIONS (7)
  - SLEEP DISORDER [None]
  - POOR QUALITY SLEEP [None]
  - DEPRESSION [None]
  - OSTEOARTHRITIS [None]
  - STRESS [None]
  - PAIN [None]
  - ANXIETY [None]
